FAERS Safety Report 23763277 (Version 1)
Quarter: 2024Q2

REPORT INFORMATION
  Report Type: Spontaneous
  Country: US (occurrence: US)
  Receive Date: 20240419
  Receipt Date: 20240419
  Transmission Date: 20240715
  Serious: No
  Sender: FDA-Public Use
  Company Number: US-E2BLSMVVAL-SPO/USA/24/0005566

PATIENT
  Sex: Female

DRUGS (1)
  1. ATORVASTATIN CALCIUM [Suspect]
     Active Substance: ATORVASTATIN CALCIUM
     Indication: Product used for unknown indication
     Dosage: G WHITE TO OFF-WHITE, CAPSULE SHAPED, BICONVEX

REACTIONS (3)
  - Muscle spasms [Unknown]
  - Sleep disorder [Unknown]
  - Abnormal dreams [Unknown]
